FAERS Safety Report 7200687-4 (Version None)
Quarter: 2010Q4

REPORT INFORMATION
  Report Type: 
  Country: None (occurrence: None)
  Receive Date: 20101228
  Receipt Date: 20101223
  Transmission Date: 20110411
  Serious: Yes (Other)
  Sender: FDA-Public Use
  Company Number: FR-PFIZER INC-2010178311

PATIENT
  Age: 70 Year
  Sex: Male

DRUGS (12)
  1. TAZOCILLINE [Suspect]
     Indication: GANGRENE
     Dosage: UNK
     Route: 042
     Dates: start: 20081030, end: 20081107
  2. TARGOCID [Suspect]
     Indication: GANGRENE
     Dosage: UNK
     Route: 042
     Dates: start: 20081030, end: 20081107
  3. OFLOCET [Suspect]
     Indication: GANGRENE
     Dosage: 200MG/40ML, UNK
     Route: 042
     Dates: start: 20081030, end: 20081107
  4. POVIDONE-IODINE [Suspect]
     Dosage: UNK
     Dates: start: 20081104, end: 20081104
  5. ALPRAZOLAM [Concomitant]
  6. TAHOR [Concomitant]
  7. AMLODIPINE BESILATE [Concomitant]
  8. PLAVIX [Concomitant]
     Dosage: 75 MG, UNK
  9. ACEBUTOLOL [Concomitant]
  10. EZETROL [Concomitant]
  11. INSULATARD [Concomitant]
  12. HUMALOG [Concomitant]

REACTIONS (4)
  - ACUTE GENERALISED EXANTHEMATOUS PUSTULOSIS [None]
  - DISEASE PROGRESSION [None]
  - GANGRENE [None]
  - RENAL FAILURE ACUTE [None]
